FAERS Safety Report 7166484-3 (Version None)
Quarter: 2010Q4

REPORT INFORMATION
  Report Type: 
  Country: None (occurrence: None)
  Receive Date: 20101216
  Receipt Date: 20100511
  Transmission Date: 20110411
  Serious: Yes (Disabling)
  Sender: FDA-Public Use
  Company Number: US-CELGENEUS-163-21880-10040349

PATIENT
  Sex: Male

DRUGS (7)
  1. REVLIMID [Suspect]
     Indication: MULTIPLE MYELOMA
     Route: 048
     Dates: start: 20100120, end: 20100301
  2. MORPHINE [Concomitant]
     Indication: PAIN
     Route: 048
     Dates: start: 20090301
  3. CITALOPRAM HYDROBROMIDE [Concomitant]
     Indication: DEPRESSION
     Route: 048
     Dates: start: 20090301
  4. LEVOTHYROXINE [Concomitant]
     Indication: HYPOTHYROIDISM
     Route: 048
     Dates: start: 20090401
  5. PAMIDRONATE DISODIUM [Concomitant]
     Route: 051
     Dates: start: 20100401
  6. PAMIDRONATE DISODIUM [Concomitant]
     Indication: OSTEOPOROSIS
  7. ONDANSETRON [Concomitant]
     Indication: NAUSEA
     Route: 048
     Dates: start: 20100301

REACTIONS (1)
  - DECREASED APPETITE [None]
